FAERS Safety Report 24088792 (Version 1)
Quarter: 2024Q3

REPORT INFORMATION
  Report Type: Report from Study
  Country: US (occurrence: US)
  Receive Date: 20240715
  Receipt Date: 20240715
  Transmission Date: 20241016
  Serious: Yes (Other)
  Sender: ROCHE
  Company Number: None

PATIENT

DRUGS (1)
  1. XOLAIR [Suspect]
     Active Substance: OMALIZUMAB
     Indication: Product used for unknown indication
     Route: 065

REACTIONS (6)
  - Eczema [Unknown]
  - Anaphylactic reaction [Unknown]
  - Panic attack [Unknown]
  - Bladder pain [Unknown]
  - Mast cell activation syndrome [Unknown]
  - Drug ineffective [Unknown]
